FAERS Safety Report 9300452 (Version 4)
Quarter: 2013Q3

REPORT INFORMATION
  Report Type: Report from Study
  Country: US (occurrence: US)
  Receive Date: 20130521
  Receipt Date: 20130709
  Transmission Date: 20140515
  Serious: Yes (Hospitalization)
  Sender: FDA-Public Use
  Company Number: US-VERTEX PHARMACEUTICALS INC-2013-006229

PATIENT
  Sex: Male
  Weight: 94 kg

DRUGS (6)
  1. VX-950 (TELAPREVIR) [Suspect]
     Indication: HEPATITIS C
     Dosage: UNK
     Route: 048
     Dates: start: 20130308
  2. VX-950 (TELAPREVIR) [Suspect]
     Dosage: UNK
     Dates: end: 20130614
  3. PEGASYS [Suspect]
     Indication: HEPATITIS C
     Dosage: UNK
     Dates: start: 20130308
  4. PEGASYS [Suspect]
     Dosage: UNK
  5. RIBAVIRIN [Suspect]
     Indication: HEPATITIS C
     Dosage: UNK
     Dates: start: 20130308
  6. RIBAVIRIN [Suspect]
     Dosage: UNK

REACTIONS (6)
  - Haemorrhoids [Not Recovered/Not Resolved]
  - Polyp [Unknown]
  - Chapped lips [Not Recovered/Not Resolved]
  - Treatment noncompliance [Not Recovered/Not Resolved]
  - Fatigue [Not Recovered/Not Resolved]
  - Platelet count decreased [Unknown]
